FAERS Safety Report 9892162 (Version 1)
Quarter: 2014Q1

REPORT INFORMATION
  Report Type: Spontaneous
  Country: IT (occurrence: IT)
  Receive Date: 20140212
  Receipt Date: 20140212
  Transmission Date: 20141002
  Serious: Yes (Hospitalization)
  Sender: FDA-Public Use
  Company Number: PHHY2014IT016522

PATIENT
  Age: 92 Year
  Sex: Female

DRUGS (8)
  1. TAREG [Suspect]
     Indication: HYPERTENSION
     Dosage: 320 MG, DAILY
     Route: 048
     Dates: start: 20131020, end: 20140131
  2. GLUCOPHAGE [Suspect]
     Indication: DIABETES MELLITUS
     Dosage: 1500 MG, DAILY
     Route: 048
     Dates: start: 20130101, end: 20140131
  3. SPIRONOLACTONE [Suspect]
     Dosage: 25 MG, DAILY
     Route: 048
     Dates: start: 20131020, end: 20140131
  4. FUROSEMIDE [Concomitant]
     Dosage: 25 MG, UNK
     Route: 048
  5. ALLOPURINOL [Concomitant]
     Dosage: UNK UKN, UNK
  6. ESOMEPRAZOLE [Concomitant]
     Dosage: UNK UKN, UNK
  7. CARDICOR [Concomitant]
     Dosage: UNK UKN, UNK
  8. CARDIOASPIRIN [Concomitant]
     Dosage: UNK UKN, UNK

REACTIONS (3)
  - Acidosis [Recovering/Resolving]
  - Hyperkalaemia [Recovering/Resolving]
  - Acute prerenal failure [Recovering/Resolving]
